FAERS Safety Report 9115761 (Version 2)
Quarter: 2013Q1

REPORT INFORMATION
  Report Type: Spontaneous
  Country: US (occurrence: US)
  Receive Date: 20130224
  Receipt Date: 20130226
  Transmission Date: 20140127
  Serious: No
  Sender: FDA-Public Use
  Company Number: US-009507513-1302USA000636

PATIENT
  Sex: Female

DRUGS (28)
  1. ZOCOR [Suspect]
     Dosage: UNK
     Route: 048
  2. PRINZIDE [Suspect]
     Dosage: UNK
  3. PRAVASTATIN SODIUM [Suspect]
     Dosage: UNK
  4. DIVON-50 [Concomitant]
     Dosage: 1 DF, QD
     Dates: start: 20130115
  5. SPIRONOLACTONE [Concomitant]
     Dosage: 25 MG, BID
     Dates: start: 20120927
  6. SPIRONOLACTONE [Concomitant]
     Dosage: 25 MG, BID
     Dates: start: 20121202
  7. NEURONTIN [Concomitant]
     Indication: PAIN IN EXTREMITY
     Dosage: 1-3 CAPSULES TID, PRN
     Dates: start: 20121113, end: 20121212
  8. NEURONTIN [Concomitant]
     Indication: NEURALGIA
  9. CARISOPRODOL [Concomitant]
     Dosage: 350 MG, TID
     Route: 048
  10. KEPPRA [Concomitant]
     Dosage: 500 MG, BID
     Route: 048
  11. KETOCONAZOLE [Concomitant]
     Dosage: 1 DF, PRN
     Dates: start: 20121105
  12. DESONIDE [Concomitant]
     Dosage: 1 DF, AM, 60GRAM
     Dates: start: 20121105
  13. DIFLUCAN [Concomitant]
     Dosage: 150 MG, QW
     Dates: start: 20121101
  14. FML [Concomitant]
     Dosage: APPLY TO EYELID SKIN IN EACH EYE FOR 1 WEEK, I TUBE
     Dates: start: 20121026
  15. NYSTATIN [Concomitant]
     Dosage: I POWDER TO AFFETED AREAS TWICE WEEKLY, 60 GRAMS
     Dates: start: 20121022
  16. TERBINAFINE HYDROCHLORIDE [Concomitant]
     Dosage: 1 CREAM BID TO AFFECTED AREA, 30 GRAM
     Dates: start: 20121022
  17. ZOSTAVAX [Concomitant]
     Dosage: 19400UNIT/0.65ML, 1 FOR SOLUTION ONCE
     Dates: start: 20120810
  18. CHOLECALCIFEROL [Concomitant]
     Dosage: 1 DF, QD
     Route: 048
     Dates: start: 20120518
  19. CYANOCOBALAMIN [Concomitant]
     Dosage: 1 DF, QD
     Route: 048
     Dates: start: 20120518, end: 20120815
  20. ATORVASTATIN CALCIUM [Concomitant]
     Dosage: 40 MG, QH
     Route: 048
     Dates: start: 20121001, end: 20121229
  21. OXYBUTYNIN CHLORIDE [Concomitant]
     Dosage: 5 MG, BID
     Route: 048
     Dates: start: 20121029, end: 20130126
  22. ERGOCALCIFEROL [Concomitant]
     Dosage: 50000UNIT,1 CAPUSULE, QW FOR 15WEEKS
     Route: 048
     Dates: start: 20120518
  23. COREG [Concomitant]
     Dosage: 25 MG, BID
     Dates: start: 20121022
  24. NORVASC [Concomitant]
     Dosage: 5 MG, QD
     Route: 048
     Dates: start: 20121009
  25. CELEBREX [Concomitant]
     Dosage: 200 MG, QD
     Route: 048
     Dates: start: 20121009
  26. PANTOPRAZOLE SODIUM [Concomitant]
     Dosage: 40 MG, QD
     Route: 048
     Dates: start: 20120831
  27. LASIX (FUROSEMIDE) [Concomitant]
     Dosage: 80 MG, QD
     Route: 048
     Dates: start: 20120820
  28. PLAVIX [Concomitant]
     Dosage: 75 MG, QD
     Route: 048
     Dates: start: 20120820

REACTIONS (5)
  - Swelling [Unknown]
  - Myalgia [Unknown]
  - Pruritus [Unknown]
  - Rash [Unknown]
  - Hypersensitivity [Unknown]
